FAERS Safety Report 8337048-0 (Version None)
Quarter: 2012Q2

REPORT INFORMATION
  Report Type: 
  Country: None (occurrence: None)
  Receive Date: 20120504
  Receipt Date: 20110104
  Transmission Date: 20120825
  Serious: Yes (Hospitalization, Other)
  Sender: FDA-Public Use
  Company Number: US-BAYER-201036471NA

PATIENT
  Age: 35 Year
  Sex: Female
  Weight: 71 kg

DRUGS (11)
  1. IBUPROFEN [Concomitant]
     Dosage: UNK
     Dates: start: 19960101, end: 20070101
  2. YASMIN [Suspect]
     Indication: ORAL CONTRACEPTION
     Route: 046
     Dates: end: 20070920
  3. YASMIN [Suspect]
     Indication: ACNE
  4. DILAUDID [Concomitant]
     Indication: HEADACHE
  5. NSAID'S [Concomitant]
  6. OXYCODONE HCL AND ACETAMINOPHEN [Concomitant]
     Dosage: UNK
     Dates: start: 20070501
  7. IBUPROFEN (ADVIL) [Concomitant]
     Dosage: UNK
     Dates: start: 19960101, end: 20070101
  8. DILAUDID [Concomitant]
     Indication: PAIN
  9. DILAUDID [Concomitant]
  10. ZOFRAN [Concomitant]
     Indication: NAUSEA
  11. CLARITIN [Concomitant]
     Indication: MULTIPLE ALLERGIES
     Dosage: UNK
     Dates: start: 20010101

REACTIONS (19)
  - PROTEINURIA [None]
  - NEPHROTIC SYNDROME [None]
  - JOINT SWELLING [None]
  - ABDOMINAL PAIN UPPER [None]
  - GLOMERULONEPHRITIS MINIMAL LESION [None]
  - OEDEMA PERIPHERAL [None]
  - MUSCULOSKELETAL DISCOMFORT [None]
  - URINE ANALYSIS ABNORMAL [None]
  - PULMONARY EMBOLISM [None]
  - DYSPNOEA [None]
  - MENTAL DISORDER [None]
  - RENAL TUBULAR NECROSIS [None]
  - RENAL FAILURE [None]
  - HYPOALBUMINAEMIA [None]
  - CHROMATURIA [None]
  - ANXIETY [None]
  - DEPRESSION [None]
  - CHEST DISCOMFORT [None]
  - OEDEMA [None]
